FAERS Safety Report 12603918 (Version 4)
Quarter: 2017Q1

REPORT INFORMATION
  Report Type: Report from Study
  Country: TW (occurrence: TW)
  Receive Date: 20160728
  Receipt Date: 20170209
  Transmission Date: 20170428
  Serious: Yes (Hospitalization)
  Sender: FDA-Public Use
  Company Number: TW-JNJFOC-20160718371

PATIENT
  Age: 53 Year
  Sex: Male
  Weight: 70 kg

DRUGS (8)
  1. STELARA [Suspect]
     Active Substance: USTEKINUMAB
     Indication: PSORIASIS
     Dosage: 2 ND
     Route: 058
     Dates: start: 20150629
  2. STELARA [Suspect]
     Active Substance: USTEKINUMAB
     Indication: PSORIASIS
     Dosage: 6 TH
     Route: 058
     Dates: start: 20160502
  3. ACITRETIN. [Concomitant]
     Active Substance: ACITRETIN
     Route: 065
     Dates: start: 20150414, end: 20150721
  4. STELARA [Suspect]
     Active Substance: USTEKINUMAB
     Indication: PSORIASIS
     Dosage: 3 RD
     Route: 058
     Dates: start: 20150907
  5. STELARA [Suspect]
     Active Substance: USTEKINUMAB
     Indication: PSORIASIS
     Dosage: 5 TH
     Route: 058
     Dates: start: 20160212
  6. METHOTREXATE. [Concomitant]
     Active Substance: METHOTREXATE
     Route: 065
     Dates: start: 20160502, end: 20160520
  7. STELARA [Suspect]
     Active Substance: USTEKINUMAB
     Indication: PSORIASIS
     Dosage: 4 TH
     Route: 058
     Dates: start: 20151204
  8. STELARA [Suspect]
     Active Substance: USTEKINUMAB
     Indication: PSORIASIS
     Dosage: 1ST
     Route: 058
     Dates: start: 20150525

REACTIONS (10)
  - Pneumonia [Recovering/Resolving]
  - Anaemia [Unknown]
  - Gastrooesophageal reflux disease [Unknown]
  - Hypoxia [Unknown]
  - Sepsis [Unknown]
  - Mouth ulceration [Unknown]
  - Mucosal inflammation [Recovering/Resolving]
  - Lymphoproliferative disorder [Unknown]
  - Angiodysplasia [Unknown]
  - Chronic gastritis [Unknown]

NARRATIVE: CASE EVENT DATE: 20160520
